FAERS Safety Report 23378751 (Version 1)
Quarter: 2024Q1

REPORT INFORMATION
  Report Type: Spontaneous
  Country: US (occurrence: US)
  Receive Date: 20240108
  Receipt Date: 20240108
  Transmission Date: 20240410
  Serious: No
  Sender: FDA-Public Use
  Company Number: US-TPU-TPU-2023-00765

PATIENT
  Sex: Female

DRUGS (2)
  1. LIDOCAINE PATCH [Suspect]
     Active Substance: LIDOCAINE
     Indication: Arthritis
  2. LIDOCAINE PATCH [Suspect]
     Active Substance: LIDOCAINE
     Dates: start: 20231204

REACTIONS (1)
  - Therapeutic product effect incomplete [Unknown]
